FAERS Safety Report 19284981 (Version 1)
Quarter: 2021Q2

REPORT INFORMATION
  Report Type: Spontaneous
  Country: CN (occurrence: CN)
  Receive Date: 20210521
  Receipt Date: 20210521
  Transmission Date: 20210717
  Serious: Yes (Other)
  Sender: FDA-Public Use
  Company Number: CN-009507513-2105CHN003609

PATIENT
  Age: 39 Year
  Sex: Female
  Weight: 62 kg

DRUGS (8)
  1. CHLORIDE SODIUM [Concomitant]
     Indication: HYPOCALCAEMIA
     Dosage: 100 MILLILITER, QD
     Route: 041
     Dates: start: 20210424, end: 20210508
  2. CHLORIDE SODIUM [Concomitant]
     Dosage: 100 MILLILITER, Q12H
     Route: 041
     Dates: start: 20210425, end: 20210426
  3. CALCIUM GLUCONATE. [Concomitant]
     Active Substance: CALCIUM GLUCONATE
     Indication: HYPOCALCAEMIA
     Dosage: 1 GRAM, QD
     Route: 041
     Dates: start: 20210424, end: 20210508
  4. TIENAM [Suspect]
     Active Substance: CILASTATIN SODIUM\IMIPENEM
     Indication: PNEUMONIA BACTERIAL
     Dosage: 0.5 GRAM, Q12H
     Route: 041
     Dates: start: 20210425, end: 20210426
  5. ACETYLCYSTEINE. [Concomitant]
     Active Substance: ACETYLCYSTEINE
     Indication: PNEUMONIA BACTERIAL
     Dosage: 0.6 GRAM, BID
     Route: 048
     Dates: start: 20210423, end: 20210508
  6. CHLORIDE SODIUM [Concomitant]
     Indication: PNEUMONIA BACTERIAL
     Dosage: 100 MILLILITER, Q12H
     Route: 041
     Dates: start: 20210423, end: 20210425
  7. PIPERACILLIN AND TAZOBACTAM [Concomitant]
     Active Substance: PIPERACILLIN SODIUM\TAZOBACTAM SODIUM
     Indication: PNEUMONIA BACTERIAL
     Dosage: 4.5 GRAM, Q12H
     Route: 041
     Dates: start: 20210423, end: 20210425
  8. BETALOC ZOK [Concomitant]
     Active Substance: METOPROLOL SUCCINATE
     Indication: HYPERTENSION
     Dosage: 47.5 MILLIGRAM, QD
     Route: 048
     Dates: start: 20210423, end: 20210508

REACTIONS (6)
  - Loss of consciousness [Recovered/Resolved]
  - Drooling [Recovered/Resolved]
  - Skin discolouration [Recovered/Resolved]
  - Oxygen saturation decreased [Recovered/Resolved]
  - Listless [Unknown]
  - Muscle twitching [Recovered/Resolved]

NARRATIVE: CASE EVENT DATE: 20210427
